FAERS Safety Report 9726079 (Version 2)
Quarter: 2013Q4

REPORT INFORMATION
  Report Type: Spontaneous
  Country: GB (occurrence: None)
  Receive Date: 20131129
  Receipt Date: 20131217
  Transmission Date: 20140711
  Serious: Yes (Death)
  Sender: FDA-Public Use
  Company Number: 2013MPI00759

PATIENT
  Age: 70 Year
  Sex: Male

DRUGS (3)
  1. ADCETRIS (BRENTUXIMAB VEDOTIN) INJECTION [Suspect]
     Indication: HODGKIN^S DISEASE
     Route: 042
     Dates: start: 20130531, end: 20130719
  2. SEPTRIN [Suspect]
  3. ASPIRIN (ACETYLSALICYLIC ACID) [Concomitant]

REACTIONS (3)
  - Renal failure [None]
  - Neutropenic sepsis [None]
  - Thrombocytopenia [None]
